FAERS Safety Report 23071093 (Version 1)
Quarter: 2023Q4

REPORT INFORMATION
  Report Type: Spontaneous
  Country: US (occurrence: US)
  Receive Date: 20231016
  Receipt Date: 20231016
  Transmission Date: 20240109
  Serious: No
  Sender: FDA-Public Use
  Company Number: US-INCYTE CORPORATION-2023IN010686

PATIENT

DRUGS (3)
  1. JAKAFI [Suspect]
     Active Substance: RUXOLITINIB
     Indication: Chronic graft versus host disease
     Route: 065
  2. BELUMOSUDIL [Concomitant]
     Active Substance: BELUMOSUDIL
     Indication: Chronic graft versus host disease
     Dosage: UNK
     Route: 065
     Dates: start: 202205
  3. PREDNISONE [Concomitant]
     Active Substance: PREDNISONE
     Indication: Chronic graft versus host disease
     Route: 065

REACTIONS (1)
  - Toxicity to various agents [Unknown]
